FAERS Safety Report 5713304-7 (Version None)
Quarter: 2008Q2

REPORT INFORMATION
  Report Type: 
  Country: None (occurrence: None)
  Receive Date: 20080422
  Receipt Date: 20080410
  Transmission Date: 20081010
  Serious: Yes (Hospitalization)
  Sender: FDA-Public Use
  Company Number: GB-PFIZER INC-2007051949

PATIENT
  Sex: Male

DRUGS (6)
  1. SU-011,248 [Suspect]
     Indication: RENAL CELL CARCINOMA
     Route: 048
  2. SU-011,248 [Suspect]
     Route: 048
  3. SU-011,248 [Suspect]
     Route: 048
  4. AMLODIPINE [Concomitant]
     Route: 048
  5. BISOPROLOL FUMARATE [Concomitant]
     Route: 048
  6. LANSOPRAZOLE [Concomitant]
     Route: 048

REACTIONS (5)
  - DRUG TOXICITY [None]
  - METASTASES TO LUNG [None]
  - METASTASES TO LYMPH NODES [None]
  - NEOPLASM RECURRENCE [None]
  - PLEURAL EFFUSION [None]
